FAERS Safety Report 7721119-3 (Version None)
Quarter: 2011Q3

REPORT INFORMATION
  Report Type: 
  Country: None (occurrence: None)
  Receive Date: 20110825
  Receipt Date: 20110811
  Transmission Date: 20111222
  Serious: Yes (Hospitalization)
  Sender: FDA-Public Use
  Company Number: 1000021891

PATIENT
  Age: 57 Year
  Sex: Female

DRUGS (17)
  1. CALCIUM (CALCIUM) (CALCIUM) [Concomitant]
  2. VITAMIN D (ERGOCALCIFEROL) (ERGOCALCIFEROL) [Concomitant]
  3. ADVAIR (SALMETEROL, FLUTICASONE) (SALMETEROL, FLUTICASONE) [Concomitant]
  4. NAPROXEN [Concomitant]
  5. MIRTAZAPINE [Concomitant]
  6. TOBRAMYCIN [Concomitant]
  7. PANTOPRAZOLE (PANTOPRAZOLE) (PANTORPAZOLE) [Concomitant]
  8. ASPIRINE (ACETYLSALICYLIC ACID) (ACETYLSALICYLIC ACID) [Concomitant]
  9. HYDROMORPHINE (HYDROMORPHINE) (HYDROMORPHINE) [Concomitant]
  10. ROFLUMILAST (ROFLUMILAST) (TABLETS) [Suspect]
     Indication: CHRONIC OBSTRUCTIVE PULMONARY DISEASE
     Dosage: 500 MCG (500 MCG, 1 IN 1 D), ORAL
     Route: 048
     Dates: start: 20110228, end: 20110228
  11. BUDESONIDE (BUDESONIDE) (BUDESONSIDE) [Concomitant]
  12. CRESTOR (ROSUVASTATIN) (ROSUVSTATIN) [Concomitant]
  13. ENOXAPARIN (ENOXAPARIN) (ENOXAPARIN) [Concomitant]
  14. OXAZEPAM (OXAZEPAM) (OXAZEPAM) [Concomitant]
  15. SALBUTAMOL (SALBUMTAOL) (SALBUTAMOL) [Concomitant]
  16. SPIRIVA (TIOTROPIUM BROMIDE) (TIOTROPIUM BROMIDE) [Concomitant]
  17. BACTRIM (TRIMETHOPRIM, SULFAMETHOXAZOLE) (TRIMETHOPRIM, SULFAMETHOXAZO [Concomitant]

REACTIONS (3)
  - DIARRHOEA [None]
  - DEHYDRATION [None]
  - VOMITING [None]
